FAERS Safety Report 19101595 (Version 4)
Quarter: 2021Q3

REPORT INFORMATION
  Report Type: Spontaneous
  Country: US (occurrence: US)
  Receive Date: 20210407
  Receipt Date: 20210721
  Transmission Date: 20211014
  Serious: No
  Sender: FDA-Public Use
  Company Number: US-SA-2021SA112953

PATIENT
  Age: 13 Year
  Sex: Male
  Weight: 63.5 kg

DRUGS (19)
  1. CETIRIZINE [Concomitant]
     Active Substance: CETIRIZINE HYDROCHLORIDE
  2. HEPARIN [Concomitant]
     Active Substance: HEPARIN SODIUM
  3. NORMAL SALINE [Concomitant]
     Active Substance: SODIUM CHLORIDE
  4. NORMAL SALINE [Concomitant]
     Active Substance: SODIUM CHLORIDE
  5. PRILOCAINE [Concomitant]
     Active Substance: PRILOCAINE
  6. STERILE WATER [Concomitant]
     Active Substance: WATER
  7. CETIRIZINE [Concomitant]
     Active Substance: CETIRIZINE HYDROCHLORIDE
  8. METHYLPHENIDATE. [Concomitant]
     Active Substance: METHYLPHENIDATE
  9. DIPHENHYDRAMINE. [Concomitant]
     Active Substance: DIPHENHYDRAMINE
  10. EPINEPHRINE. [Concomitant]
     Active Substance: EPINEPHRINE
  11. METHYLPHENIDATE. [Concomitant]
     Active Substance: METHYLPHENIDATE
  12. CEREZYME [Suspect]
     Active Substance: IMIGLUCERASE
     Indication: GAUCHER^S DISEASE
  13. HEPARIN [Concomitant]
     Active Substance: HEPARIN SODIUM
  14. ZYRTEC [Concomitant]
     Active Substance: CETIRIZINE HYDROCHLORIDE
  15. ZYRTEC [Concomitant]
     Active Substance: CETIRIZINE HYDROCHLORIDE
  16. CEREZYME [Suspect]
     Active Substance: IMIGLUCERASE
     Indication: LIPIDOSIS
     Dosage: 3600 IU, QOW
     Route: 042
     Dates: start: 20190124
  17. DIPHENHYDRAMINE. [Concomitant]
     Active Substance: DIPHENHYDRAMINE
  18. LIDOCAINE/PRILOCAINE [Concomitant]
     Active Substance: LIDOCAINE\PRILOCAINE
  19. EPINEPHRINE. [Concomitant]
     Active Substance: EPINEPHRINE

REACTIONS (4)
  - Product dose omission issue [Unknown]
  - Device issue [Unknown]
  - COVID-19 [Unknown]
  - Weight decreased [Unknown]

NARRATIVE: CASE EVENT DATE: 2021
